FAERS Safety Report 7331623-8 (Version None)
Quarter: 2011Q1

REPORT INFORMATION
  Report Type: 
  Country: None (occurrence: None)
  Receive Date: 20110228
  Receipt Date: 20110228
  Transmission Date: 20110831
  Serious: Yes (Hospitalization)
  Sender: FDA-Public Use
  Company Number: None

PATIENT
  Sex: Male
  Weight: 150.8029 kg

DRUGS (2)
  1. CAMPATH [Suspect]
     Dosage: 30 MG, QD IV
     Route: 042
     Dates: start: 20110128
  2. CAMPATH [Suspect]
     Dosage: 30 MG, QD, IV

REACTIONS (5)
  - DIALYSIS [None]
  - GRAFT DYSFUNCTION [None]
  - BLOOD CREATINE INCREASED [None]
  - BLOOD UREA INCREASED [None]
  - FLUID OVERLOAD [None]
